FAERS Safety Report 17570963 (Version 3)
Quarter: 2020Q4

REPORT INFORMATION
  Report Type: Spontaneous
  Country: US (occurrence: US)
  Receive Date: 20200323
  Receipt Date: 20201126
  Transmission Date: 20210113
  Serious: Yes (Other)
  Sender: FDA-Public Use
  Company Number: US-PFIZER INC-2020123082

PATIENT
  Age: 64 Year
  Sex: Female

DRUGS (1)
  1. XELJANZ XR [Suspect]
     Active Substance: TOFACITINIB CITRATE
     Indication: PSORIATIC ARTHROPATHY
     Dosage: 11 MG, DAILY
     Route: 048
     Dates: start: 20200210, end: 2020

REACTIONS (7)
  - Hypertension [Unknown]
  - Nerve compression [Unknown]
  - Drug ineffective [Unknown]
  - Allergic sinusitis [Unknown]
  - Influenza [Unknown]
  - Pollakiuria [Unknown]
  - Pain [Unknown]

NARRATIVE: CASE EVENT DATE: 2020
